FAERS Safety Report 4548291-0 (Version None)
Quarter: 2005Q1

REPORT INFORMATION
  Report Type: 
  Country: None (occurrence: None)
  Receive Date: 20050106
  Receipt Date: 20050106
  Transmission Date: 20050727
  Serious: Yes (Hospitalization)
  Sender: FDA-Public Use
  Company Number: None

PATIENT
  Age: 56 Year
  Sex: Male

DRUGS (19)
  1. METHADONE HCL [Suspect]
     Dosage: 10MG PO TID
     Route: 048
     Dates: start: 20041006, end: 20041018
  2. TYLOX [Suspect]
     Dosage: 325/5 W 2Q6H PRN
     Dates: start: 20040918, end: 20041018
  3. RANITIDINE HCL [Concomitant]
  4. OXYCODONE HCL [Concomitant]
  5. ACETAMIN. [Concomitant]
  6. ASCORBIC ACID [Concomitant]
  7. DIVALPROEX SODIUM [Concomitant]
  8. DOCUSATE [Concomitant]
  9. FOLIC ACID [Concomitant]
  10. HYDROCHLOROTHIAZIDE [Concomitant]
  11. VITAMIN E [Concomitant]
  12. AMITRIPTYLINE HCL [Concomitant]
  13. METHADONE HCL [Concomitant]
  14. IRBESARTAN [Concomitant]
  15. PAROXETINE HCL [Concomitant]
  16. DIAZEPAM [Concomitant]
  17. COTRIM [Concomitant]
  18. BACLOFEN [Concomitant]
  19. OXYBUTYNIN CHLORIDE [Concomitant]

REACTIONS (1)
  - MENTAL STATUS CHANGES [None]
